FAERS Safety Report 12983497 (Version 1)
Quarter: 2016Q4

REPORT INFORMATION
  Report Type: Spontaneous
  Country: US (occurrence: US)
  Receive Date: 20161128
  Receipt Date: 20161128
  Transmission Date: 20170207
  Serious: No
  Sender: FDA-Public Use
  Company Number: None

PATIENT
  Age: 59 Year
  Sex: Female
  Weight: 52.66 kg

DRUGS (1)
  1. CRESTOR [Suspect]
     Active Substance: ROSUVASTATIN CALCIUM
     Dosage: 1/2 TAB ONE/WEEK PO
     Route: 048
     Dates: start: 20120817, end: 20120907

REACTIONS (1)
  - Myalgia [None]

NARRATIVE: CASE EVENT DATE: 20160907
